FAERS Safety Report 5279272-X (Version None)
Quarter: 2007Q1

REPORT INFORMATION
  Report Type: 
  Country: None (occurrence: None)
  Receive Date: 20070328
  Receipt Date: 20060725
  Transmission Date: 20070707
  Serious: No
  Sender: FDA-Public Use
  Company Number: US-AMGEN-KDL183755

PATIENT
  Sex: Female
  Weight: 69 kg

DRUGS (8)
  1. NEULASTA [Suspect]
     Indication: CHEMOTHERAPY
     Route: 058
     Dates: start: 20060413, end: 20060608
  2. NEULASTA [Suspect]
     Route: 058
     Dates: start: 20060622, end: 20060706
  3. DOXORUBICIN HYDROCHLORIDE [Concomitant]
     Dates: start: 20060412, end: 20060524
  4. CYCLOPHOSPHAMIDE [Concomitant]
     Dates: start: 20060412, end: 20060524
  5. PACLITAXEL [Concomitant]
     Dates: start: 20060607, end: 20060719
  6. PROCRIT [Concomitant]
     Dates: start: 20060525
  7. PRINIVIL [Concomitant]
  8. NEURONTIN [Concomitant]

REACTIONS (1)
  - WHITE BLOOD CELL COUNT DECREASED [None]
